FAERS Safety Report 24863714 (Version 1)
Quarter: 2025Q1

REPORT INFORMATION
  Report Type: Spontaneous
  Country: US (occurrence: US)
  Receive Date: 20250120
  Receipt Date: 20250120
  Transmission Date: 20250409
  Serious: No
  Sender: Phathom Pharmaceuticals
  Company Number: US-PHATHOM PHARMACEUTICALS INC.-2024PHT01412

PATIENT
  Age: 62 Year
  Sex: Female
  Weight: 72.562 kg

DRUGS (9)
  1. VOQUEZNA [Suspect]
     Active Substance: VONOPRAZAN FUMARATE
     Indication: Ulcer
     Dosage: 20 MG, 1X/DAY
     Route: 048
     Dates: start: 20240918, end: 2024
  2. VOQUEZNA [Suspect]
     Active Substance: VONOPRAZAN FUMARATE
     Indication: Gastrooesophageal reflux disease
  3. VOQUEZNA [Suspect]
     Active Substance: VONOPRAZAN FUMARATE
     Indication: Ulcer
     Dosage: 10 MG, 1X/DAY
     Route: 048
     Dates: start: 2024, end: 202411
  4. VOQUEZNA [Suspect]
     Active Substance: VONOPRAZAN FUMARATE
     Indication: Gastrooesophageal reflux disease
  5. ^THYROID MEDS^ [Concomitant]
  6. TIROSINT [Concomitant]
     Active Substance: LEVOTHYROXINE SODIUM
  7. AIRSUPRA [Concomitant]
     Active Substance: ALBUTEROL SULFATE\BUDESONIDE
  8. CYTOMEL [Concomitant]
     Active Substance: LIOTHYRONINE SODIUM
  9. PROGESTERONE [Concomitant]
     Active Substance: PROGESTERONE

REACTIONS (16)
  - Dehydration [Recovering/Resolving]
  - Hypophagia [Recovering/Resolving]
  - Nocturia [Recovering/Resolving]
  - Urine odour abnormal [Recovering/Resolving]
  - Urine abnormality [Recovering/Resolving]
  - Hyperhidrosis [Recovering/Resolving]
  - Cold sweat [Recovering/Resolving]
  - Nervousness [Recovering/Resolving]
  - Pain [Unknown]
  - Dysuria [Recovering/Resolving]
  - Hypertension [Recovering/Resolving]
  - Abdominal pain upper [Recovering/Resolving]
  - Headache [Recovering/Resolving]
  - Nausea [Recovering/Resolving]
  - Abdominal pain [Recovering/Resolving]
  - Dizziness [Recovering/Resolving]

NARRATIVE: CASE EVENT DATE: 20241120
